FAERS Safety Report 25645882 (Version 1)
Quarter: 2025Q3

REPORT INFORMATION
  Report Type: Spontaneous
  Country: US (occurrence: None)
  Receive Date: 20250804
  Receipt Date: 20250804
  Transmission Date: 20251021
  Serious: No
  Sender: FDA-CTU
  Company Number: None

PATIENT
  Age: 28 Year
  Sex: Female
  Weight: 78.75 kg

DRUGS (1)
  1. SUMATRIPTAN SUCCINATE [Suspect]
     Active Substance: SUMATRIPTAN SUCCINATE
     Indication: Migraine
     Route: 048
     Dates: start: 20250618

REACTIONS (6)
  - Feeling hot [None]
  - Flushing [None]
  - Discomfort [None]
  - Illness [None]
  - Abdominal discomfort [None]
  - Dizziness [None]
